FAERS Safety Report 7982571 (Version 2)
Quarter: 2012Q4

REPORT INFORMATION
  Report Type: 
  Country: CA (occurrence: CA)
  Receive Date: 20110609
  Receipt Date: 20121104
  Transmission Date: 20130627
  Serious: Yes (Death, Hospitalization)
  Sender: FDA-Public Use
  Company Number: PHMT2007CA02168

PATIENT
  Sex: Female
  Weight: 52 kg

DRUGS (1)
  1. ZOMETA [Suspect]
     Indication: LUNG NEOPLASM MALIGNANT
     Dosage: 4 mg, every 4 weeks
     Route: 042
     Dates: start: 20050303, end: 20070926

REACTIONS (5)
  - Life expectancy shortened [Fatal]
  - Blood calcium decreased [Unknown]
  - Pain [Unknown]
  - Dizziness [Unknown]
  - Headache [Unknown]
